FAERS Safety Report 24023248 (Version 4)
Quarter: 2024Q2

REPORT INFORMATION
  Report Type: Report from Study
  Country: IT (occurrence: IT)
  Receive Date: 20240627
  Receipt Date: 20240628
  Transmission Date: 20240716
  Serious: No
  Sender: FDA-Public Use
  Company Number: IT-ROCHE-3529229

PATIENT
  Age: 54 Year
  Sex: Female
  Weight: 51.0 kg

DRUGS (18)
  1. ALECTINIB [Suspect]
     Active Substance: ALECTINIB
     Indication: Lung cancer metastatic
     Route: 048
     Dates: start: 20230310
  2. OMEPRAZOLE [Concomitant]
     Active Substance: DONEPEZIL HYDROCHLORIDE\OMEPRAZOLE\OMEPRAZOLE MAGNESIUM
     Route: 048
     Dates: end: 20230810
  3. PERINDOPRIL [Concomitant]
     Active Substance: PERINDOPRIL
     Indication: Hypertension
     Route: 048
     Dates: end: 20230612
  4. ATORVASTATIN [Concomitant]
     Active Substance: ATORVASTATIN
     Indication: Dyslipidaemia
     Route: 048
  5. FOLINA [Concomitant]
     Indication: Folate deficiency
     Route: 048
     Dates: start: 20230306
  6. LEVOPRAID [Concomitant]
     Route: 048
     Dates: start: 20230310
  7. DEXAMETHASONE SODIUM PHOSPHATE [Concomitant]
     Active Substance: DEXAMETHASONE PHOSPHATE\DEXAMETHASONE SODIUM PHOSPHATE
     Indication: Metastases to central nervous system
     Route: 048
     Dates: start: 20230406, end: 20230809
  8. FLUIMUCIL [Concomitant]
     Active Substance: ACETYLCYSTEINE
     Route: 048
     Dates: start: 20230613, end: 20230810
  9. FLUIMUCIL [Concomitant]
     Active Substance: ACETYLCYSTEINE
     Route: 048
     Dates: start: 20230613, end: 20230912
  10. ZOLPIDEM TARTRATE [Concomitant]
     Active Substance: ZOLPIDEM TARTRATE
     Indication: Insomnia
     Route: 048
     Dates: start: 20230613
  11. FAMVIR [Concomitant]
     Active Substance: FAMCICLOVIR
     Indication: Genital herpes
     Route: 048
     Dates: start: 20230726, end: 20230802
  12. ACYCLOVIR [Concomitant]
     Active Substance: ACYCLOVIR
     Indication: Genital herpes
     Route: 061
     Dates: start: 20230726
  13. AZITHROMYCIN [Concomitant]
     Active Substance: AZITHROMYCIN
     Indication: Genital herpes
     Route: 048
     Dates: start: 20230726, end: 20230801
  14. VALACYCLOVIR HYDROCHLORIDE [Concomitant]
     Active Substance: VALACYCLOVIR HYDROCHLORIDE
     Indication: Genital herpes
     Route: 048
     Dates: start: 20230810, end: 20230817
  15. PERINDOPRIL [Concomitant]
     Active Substance: PERINDOPRIL
     Indication: Hypertension
     Route: 048
     Dates: start: 20230613
  16. DEXAMETHASONE [Concomitant]
     Active Substance: DEXAMETHASONE
     Indication: Inflammation
     Route: 048
     Dates: start: 20230810, end: 20231025
  17. DEXAMETHASONE [Concomitant]
     Active Substance: DEXAMETHASONE
     Route: 048
     Dates: start: 20231215, end: 20240301
  18. DEXAMETHASONE [Concomitant]
     Active Substance: DEXAMETHASONE
     Route: 048
     Dates: start: 20231026, end: 20231214

REACTIONS (1)
  - Hyperbilirubinaemia [Not Recovered/Not Resolved]

NARRATIVE: CASE EVENT DATE: 20230623
